FAERS Safety Report 6024465-7 (Version None)
Quarter: 2008Q4

REPORT INFORMATION
  Report Type: 
  Country: None (occurrence: None)
  Receive Date: 20081231
  Receipt Date: 20080919
  Transmission Date: 20090506
  Serious: Yes (Life-Threatening)
  Sender: FDA-Public Use
  Company Number: US-BRISTOL-MYERS SQUIBB COMPANY-14245252

PATIENT
  Age: 59 Year
  Sex: Female
  Weight: 54 kg

DRUGS (8)
  1. ORENCIA [Suspect]
     Indication: RHEUMATOID ARTHRITIS
     Route: 042
     Dates: start: 20061011, end: 20080605
  2. METHOTREXATE [Suspect]
  3. SULFASALAZINE [Suspect]
  4. RITUXIMAB [Suspect]
  5. PREMARIN [Concomitant]
  6. PREDNISONE [Concomitant]
  7. TRAMADOL [Concomitant]
     Dosage: 1DF=50 UNITS NOT SPECIFIED.
  8. XANAX [Concomitant]

REACTIONS (1)
  - MALIGNANT MELANOMA [None]
